FAERS Safety Report 8131961-5 (Version None)
Quarter: 2012Q1

REPORT INFORMATION
  Report Type: 
  Country: None (occurrence: None)
  Receive Date: 20120213
  Receipt Date: 20120207
  Transmission Date: 20120608
  Serious: Yes (Other)
  Sender: FDA-Public Use
  Company Number: US-BAYER-2012-012694

PATIENT

DRUGS (1)
  1. ALEVE (CAPLET) [Suspect]
     Indication: HEADACHE
     Route: 048

REACTIONS (5)
  - PALPITATIONS [None]
  - PRURITUS [None]
  - HEART RATE INCREASED [None]
  - ERYTHEMA [None]
  - HYPERSENSITIVITY [None]
